FAERS Safety Report 8418250-6 (Version None)
Quarter: 2012Q2

REPORT INFORMATION
  Report Type: 
  Country: None (occurrence: None)
  Receive Date: 20120607
  Receipt Date: 20120530
  Transmission Date: 20120825
  Serious: Yes (Other)
  Sender: FDA-Public Use
  Company Number: DE-TEVA-340536GER

PATIENT
  Sex: Female

DRUGS (1)
  1. PROPRANOLOL [Suspect]
     Dosage: 60 MILLIGRAM;
     Route: 048
     Dates: start: 20120501

REACTIONS (1)
  - SYSTEMIC LUPUS ERYTHEMATOSUS [None]
